FAERS Safety Report 10314974 (Version 1)
Quarter: 2014Q3

REPORT INFORMATION
  Report Type: Spontaneous
  Country: ES (occurrence: ES)
  Receive Date: 20140718
  Receipt Date: 20140718
  Transmission Date: 20150326
  Serious: Yes (Life-Threatening, Hospitalization)
  Sender: FDA-Public Use
  Company Number: ES-ASTRAZENECA-2014SE52000

PATIENT
  Age: 78 Year
  Sex: Female

DRUGS (3)
  1. FLUIDASA [Suspect]
     Active Substance: PYRILAMINE
     Indication: BRONCHIAL HYPERREACTIVITY
     Route: 048
     Dates: start: 20140602, end: 20140603
  2. MYCOSTATIN [Concomitant]
     Active Substance: NYSTATIN
     Dosage: 100000 IU / ML, 1 BOTTLE OF 30 ML
     Route: 048
     Dates: start: 20140602, end: 20140603
  3. SYMBICORT [Suspect]
     Active Substance: BUDESONIDE\FORMOTEROL FUMARATE DIHYDRATE
     Dosage: 160 UG WITH UNKNOWN FREQUENCY
     Route: 055
     Dates: start: 20140602, end: 20140603

REACTIONS (2)
  - Ventricular tachycardia [Recovered/Resolved]
  - Electrocardiogram QT prolonged [Recovered/Resolved]

NARRATIVE: CASE EVENT DATE: 20140603
